FAERS Safety Report 6879397-9 (Version None)
Quarter: 2010Q3

REPORT INFORMATION
  Report Type: 
  Country: None (occurrence: None)
  Receive Date: 20100728
  Receipt Date: 20091028
  Transmission Date: 20110219
  Serious: No
  Sender: FDA-Public Use
  Company Number: US-ABBOTT-09P-163-0606281-00

PATIENT
  Sex: Female
  Weight: 68.1 kg

DRUGS (2)
  1. SYNTHROID [Suspect]
     Indication: HYPOTHYROIDISM
     Dates: start: 19890101
  2. PREMARIN [Concomitant]
     Indication: OESTROGEN REPLACEMENT THERAPY

REACTIONS (3)
  - DIARRHOEA [None]
  - HEADACHE [None]
  - INSOMNIA [None]
